FAERS Safety Report 7811773-X (Version None)
Quarter: 2011Q4

REPORT INFORMATION
  Report Type: 
  Country: None (occurrence: None)
  Receive Date: 20111013
  Receipt Date: 20110929
  Transmission Date: 20120403
  Serious: Yes (Hospitalization, Other)
  Sender: FDA-Public Use
  Company Number: US-ELI_LILLY_AND_COMPANY-US200908002238

PATIENT
  Sex: Female

DRUGS (4)
  1. FORTEO [Suspect]
     Dosage: 20 UG, QD
     Dates: end: 20110919
  2. FORTEO [Suspect]
     Dosage: 20 UG, QD
     Dates: end: 20090801
  3. FORTEO [Suspect]
     Indication: OSTEOPOROSIS
     Dosage: 20 UG, QD
     Dates: start: 20090701
  4. FORTEO [Suspect]
     Dosage: 20 UG, QD
     Route: 065
     Dates: start: 20091001

REACTIONS (10)
  - INFECTION [None]
  - BONE DENSITY DECREASED [None]
  - INJECTION SITE HAEMATOMA [None]
  - NERVOUS SYSTEM DISORDER [None]
  - FALL [None]
  - POST PROCEDURAL COMPLICATION [None]
  - ALTERED STATE OF CONSCIOUSNESS [None]
  - BRAIN OEDEMA [None]
  - MEDICATION ERROR [None]
  - ADVERSE EVENT [None]
